FAERS Safety Report 8713093 (Version 2)
Quarter: 2012Q4

REPORT INFORMATION
  Report Type: 
  Country: JP (occurrence: JP)
  Receive Date: 20120808
  Receipt Date: 20120830
  Transmission Date: 20130627
  Serious: Yes (Other)
  Sender: FDA-Public Use
  Company Number: JP-PFIZER INC-2012187394

PATIENT
  Age: 86 Year
  Sex: Female

DRUGS (3)
  1. DALACIN [Suspect]
     Dosage: 600 mg, 2x/day
     Route: 042
     Dates: start: 20120612, end: 20120615
  2. AMPICILLIN SODIUM\SULBACTAM SODIUM [Suspect]
     Dosage: UNK
     Route: 042
     Dates: start: 201206, end: 20120611
  3. CEFMETAZOLE [Suspect]

REACTIONS (2)
  - Liver disorder [Recovered/Resolved]
  - Rash [Recovering/Resolving]
